FAERS Safety Report 12469502 (Version 3)
Quarter: 2016Q3

REPORT INFORMATION
  Report Type: Spontaneous
  Country: CN (occurrence: CN)
  Receive Date: 20160615
  Receipt Date: 20160714
  Transmission Date: 20161109
  Serious: Yes (Other)
  Sender: FDA-Public Use
  Company Number: CN-ABBVIE-16P-035-1651037-00

PATIENT
  Age: 26 Year
  Sex: Male

DRUGS (2)
  1. DEPAKINE CHRONO [Suspect]
     Active Substance: VALPROATE SODIUM
     Indication: EPILEPSY
     Dosage: TABLET, EXTENDED RELEASE
     Route: 048
     Dates: start: 201506, end: 201510
  2. DEPAKINE CHRONO [Suspect]
     Active Substance: VALPROATE SODIUM
     Dosage: TABLET, EXTENDED RELEASE
     Route: 048
     Dates: start: 201605

REACTIONS (6)
  - Drug ineffective [Unknown]
  - Epilepsy [Recovered/Resolved]
  - Eye movement disorder [Unknown]
  - Nausea [Recovering/Resolving]
  - Nausea [Recovered/Resolved]
  - Seizure [Unknown]

NARRATIVE: CASE EVENT DATE: 201506
